FAERS Safety Report 7199969-4 (Version None)
Quarter: 2010Q4

REPORT INFORMATION
  Report Type: 
  Country: None (occurrence: None)
  Receive Date: 20101228
  Receipt Date: 20101220
  Transmission Date: 20110411
  Serious: No
  Sender: FDA-Public Use
  Company Number: US-PFIZER INC-2010176231

PATIENT
  Sex: Female
  Weight: 62.585 kg

DRUGS (5)
  1. ESTRING [Suspect]
     Indication: HORMONE LEVEL ABNORMAL
     Dosage: 2 MG, UNK
     Route: 067
     Dates: start: 20101101, end: 20101101
  2. ESTRING [Suspect]
     Indication: INSOMNIA
  3. ESTRING [Suspect]
     Indication: OFF LABEL USE
  4. ACETYLSALICYLIC ACID [Concomitant]
     Dosage: 81 MG, UNK
     Route: 048
  5. MULTIVITAMIN [Concomitant]
     Dosage: UNK
     Route: 048

REACTIONS (2)
  - PELVIC PAIN [None]
  - VAGINAL DISCHARGE [None]
